FAERS Safety Report 18768971 (Version 1)
Quarter: 2021Q1

REPORT INFORMATION
  Report Type: Spontaneous
  Country: US (occurrence: US)
  Receive Date: 20210121
  Receipt Date: 20210121
  Transmission Date: 20210419
  Serious: No
  Sender: FDA-Public Use
  Company Number: US-BEH-2021127464

PATIENT
  Sex: Male

DRUGS (2)
  1. FOCALIN [DEXAMETHASONE;OFLOXACIN HYDROCHLORIDE] [Concomitant]
     Active Substance: DEXAMETHASONE\OFLOXACIN
  2. HIZENTRA [Suspect]
     Active Substance: HUMAN IMMUNOGLOBULIN G
     Indication: HYPOGAMMAGLOBULINAEMIA
     Dosage: 2 GRAM, EVERY 10 DAYS
     Route: 058
     Dates: start: 201911

REACTIONS (1)
  - Decreased appetite [Unknown]
